FAERS Safety Report 16461513 (Version 2)
Quarter: 2019Q3

REPORT INFORMATION
  Report Type: Spontaneous
  Country: US (occurrence: US)
  Receive Date: 20190621
  Receipt Date: 20190717
  Transmission Date: 20191004
  Serious: No
  Sender: FDA-Public Use
  Company Number: US-009507513-1906USA007864

PATIENT
  Sex: Female

DRUGS (2)
  1. SINEMET [Suspect]
     Active Substance: CARBIDOPA\LEVODOPA
  2. ENTACAPONE. [Suspect]
     Active Substance: ENTACAPONE
     Dosage: UNK

REACTIONS (3)
  - Adverse event [Unknown]
  - Product use issue [Unknown]
  - Product dose omission [Unknown]
